FAERS Safety Report 8427624-9 (Version None)
Quarter: 2012Q2

REPORT INFORMATION
  Report Type: 
  Country: None (occurrence: None)
  Receive Date: 20120611
  Receipt Date: 20120607
  Transmission Date: 20120825
  Serious: Yes (Hospitalization, Other)
  Sender: FDA-Public Use
  Company Number: TW-BAYER-201042199GPV

PATIENT
  Age: 54 Year
  Sex: Male
  Weight: 69 kg

DRUGS (47)
  1. PLACEBO [Suspect]
     Indication: HEPATIC NEOPLASM MALIGNANT
     Dosage: 150 MG (DAILY DOSE), QD, ORAL
     Route: 048
     Dates: start: 20100429, end: 20100614
  2. SILYMARIN [Concomitant]
     Dates: start: 20100930
  3. TRAMADOL HYDROCHLORIDE [Concomitant]
     Dosage: 300 MG (DAILY DOSE), ,
     Dates: start: 20100603, end: 20100609
  4. PLACEBO [Suspect]
     Dosage: 150 MG (DAILY DOSE), QD, ORAL
     Route: 048
     Dates: start: 20100615, end: 20100722
  5. SORAFENIB (RAF KINASE INHIBITOR) [Suspect]
     Indication: HEPATIC NEOPLASM MALIGNANT
     Route: 048
     Dates: start: 20100429, end: 20100614
  6. SORAFENIB (RAF KINASE INHIBITOR) [Suspect]
     Route: 048
     Dates: start: 20100615, end: 20100722
  7. SILYMARIN [Concomitant]
     Dosage: 210 MG (DAILY DOSE), ,
     Dates: start: 20100603, end: 20100609
  8. GLYBURIDE [Concomitant]
     Indication: DIABETES MELLITUS
     Dosage: 5 MG (DAILY DOSE), QD,
     Dates: start: 20100419, end: 20100526
  9. MAGNESIUM OXIDE [Concomitant]
     Dosage: 500 MG (DAILY DOSE), ,
     Dates: start: 20100603, end: 20100609
  10. MORPHINE [Concomitant]
     Indication: ABDOMINAL PAIN
     Dosage: 10 MG (DAILY DOSE), PRN,
     Dates: start: 20100603, end: 20100609
  11. ESTAZOLAM [Concomitant]
     Indication: INSOMNIA
     Dosage: 2 MG (DAILY DOSE), ,
     Dates: start: 20100705, end: 20100718
  12. ESTAZOLAM [Concomitant]
     Dosage: 2 MG (DAILY DOSE), ,
     Dates: start: 20100805, end: 20100818
  13. METOCLOPRAMIDE [Concomitant]
     Dosage: 30 MG (DAILY DOSE), ,
     Dates: start: 20100923, end: 20100925
  14. SORAFENIB (RAF KINASE INHIBITOR) [Suspect]
     Route: 048
     Dates: start: 20100723, end: 20100902
  15. SORAFENIB (RAF KINASE INHIBITOR) [Suspect]
     Route: 048
     Dates: start: 20100903, end: 20100906
  16. GLYBURIDE [Concomitant]
     Dosage: 5 MG (DAILY DOSE), ,
     Dates: start: 20100503, end: 20100609
  17. MAGNESIUM OXIDE [Concomitant]
     Dates: start: 20100614, end: 20100718
  18. METOCLOPRAMIDE [Concomitant]
     Indication: VOMITING
     Dosage: 10 MG (DAILY DOSE), ,
     Dates: start: 20100917, end: 20100922
  19. SILYMARIN [Concomitant]
     Dosage: 210 MG (DAILY DOSE), ,
     Dates: start: 20100614, end: 20100618
  20. BUPRENORPHINE [Concomitant]
     Indication: ABDOMINAL PAIN
     Dosage: 0.2 MG (DAILY DOSE), PRN,
     Dates: start: 20100422, end: 20100505
  21. HALOPERIDOL [Concomitant]
     Dosage: 1 MG (DAILY DOSE), HS,
  22. SILYMARIN [Concomitant]
     Dates: start: 20100909, end: 20100922
  23. MAGNESIUM OXIDE [Concomitant]
     Indication: CONSTIPATION
     Dosage: 750 MG (DAILY DOSE), ,
     Dates: start: 20100422, end: 20100512
  24. TRAMADOL HYDROCHLORIDE [Concomitant]
     Dosage: 200 MG (DAILY DOSE), ,
     Dates: start: 20100923, end: 20100930
  25. TRAMADOL HYDROCHLORIDE [Concomitant]
     Dosage: 300 MG (DAILY DOSE), ,
     Dates: start: 20100909, end: 20100921
  26. MORPHINE [Concomitant]
     Dosage: 3 MG (DAILY DOSE), ,
     Dates: start: 20100922, end: 20100922
  27. ATIVAN [Concomitant]
     Indication: INSOMNIA
     Dosage: 0.5 MG (DAILY DOSE), ,
     Dates: start: 20100614, end: 20100620
  28. ATIVAN [Concomitant]
     Dosage: 2 MG (DAILY DOSE), ,
     Dates: start: 20100621, end: 20100704
  29. TELBIVUDINE [Concomitant]
     Dosage: 600 MG (DAILY DOSE), QD,
  30. PLACEBO [Suspect]
     Dosage: 150 MG (DAILY DOSE), , ORAL
     Route: 048
     Dates: start: 20100903, end: 20100906
  31. SILYMARIN [Concomitant]
     Indication: HEPATITIS B
     Dosage: 210 MG (DAILY DOSE), QD,
     Dates: start: 20100416, end: 20100526
  32. GLYBURIDE [Concomitant]
     Dosage: 5 MG (DAILY DOSE), ,
     Dates: start: 20100601, end: 20100618
  33. MAGNESIUM OXIDE [Concomitant]
     Dosage: 750 MG (DAILY DOSE), ,
     Dates: start: 20100921, end: 20100924
  34. MAGNESIUM OXIDE [Concomitant]
     Dosage: 1500 MG (DAILY DOSE), ,
     Dates: start: 20100925
  35. TRAMADOL HYDROCHLORIDE [Concomitant]
     Indication: ABDOMINAL PAIN
     Dosage: 200 MG (DAILY DOSE), QD,
     Dates: start: 20100422, end: 20100428
  36. MORPHINE [Concomitant]
     Dosage: 10 MG (DAILY DOSE), ,
     Dates: start: 20100513, end: 20100519
  37. BISACODYL [Concomitant]
     Dosage: 10 MG (DAILY DOSE), ,
     Dates: start: 20100923
  38. PANTOPRAZOLE [Concomitant]
     Dosage: 40 MG (DAILY DOSE), QD,
  39. PLACEBO [Suspect]
     Dosage: 150 MG (DAILY DOSE), , ORAL
     Route: 048
     Dates: start: 20100723, end: 20100902
  40. MAGNESIUM OXIDE [Concomitant]
     Dosage: 500 MG (DAILY DOSE), ,
     Dates: start: 20100513, end: 20100526
  41. BISACODYL [Concomitant]
     Indication: CONSTIPATION
     Dosage: 10 MG (DAILY DOSE), ,
     Dates: start: 20100920, end: 20100921
  42. LACTULOSE [Concomitant]
     Indication: CONSTIPATION
     Route: 048
     Dates: start: 20100930
  43. ZOLPIDEM [Concomitant]
     Indication: INSOMNIA
     Dosage: 10 MG (DAILY DOSE), ,
     Dates: start: 20100719, end: 20100922
  44. GRANISETRON [Concomitant]
     Dosage: 1 MG (DAILY DOSE), QD,
  45. TRAMADOL HYDROCHLORIDE [Concomitant]
     Dosage: 300 MG (DAILY DOSE), ,
     Dates: start: 20100614, end: 20100618
  46. TRAMADOL HYDROCHLORIDE [Concomitant]
     Dosage: 100 MG (DAILY DOSE), ,
     Dates: start: 20100922, end: 20100922
  47. CLONAZEPAM [Concomitant]
     Indication: INSOMNIA
     Dosage: 2 MG (DAILY DOSE), ,
     Dates: start: 20100819, end: 20100922

REACTIONS (3)
  - URINARY TRACT INFECTION [None]
  - VARICES OESOPHAGEAL [None]
  - GASTRIC ULCER [None]
